FAERS Safety Report 5806001-0 (Version None)
Quarter: 2008Q3

REPORT INFORMATION
  Report Type: 
  Country: None (occurrence: None)
  Receive Date: 20080710
  Receipt Date: 20080708
  Transmission Date: 20090109
  Serious: Yes (Other)
  Sender: FDA-Public Use
  Company Number: B0528053A

PATIENT
  Age: 68 Year
  Sex: Male

DRUGS (10)
  1. ARTIST [Suspect]
     Indication: HYPERTENSION
     Route: 048
     Dates: start: 20080401
  2. OLMETEC [Suspect]
     Indication: HYPERTENSION
     Dosage: 20MG PER DAY
     Route: 048
     Dates: start: 20080401
  3. LOXONIN [Suspect]
     Indication: PAIN
     Dosage: 60MG AS REQUIRED
     Route: 048
     Dates: start: 20080510, end: 20080519
  4. EPLERENONE [Suspect]
     Indication: DRUG USE FOR UNKNOWN INDICATION
     Route: 065
  5. ASPIRIN [Suspect]
     Indication: THROMBOSIS PROPHYLAXIS
     Dosage: 100MG PER DAY
     Route: 048
     Dates: start: 20080401, end: 20080515
  6. WARFARIN SODIUM [Suspect]
     Indication: THROMBOSIS PROPHYLAXIS
     Dosage: 7MG PER DAY
     Route: 048
     Dates: start: 20080401, end: 20080511
  7. PARIET [Suspect]
     Dosage: 10MG PER DAY
     Route: 048
     Dates: start: 20080401
  8. ALLOPURINOL [Suspect]
     Indication: PROPHYLAXIS
     Route: 048
     Dates: start: 20080502
  9. ZYLORIC [Suspect]
     Indication: PROPHYLAXIS
     Route: 048
     Dates: start: 20080401, end: 20080501
  10. LASIX [Concomitant]
     Route: 065
     Dates: start: 20080401

REACTIONS (6)
  - ANAEMIA [None]
  - CHOLECYSTITIS [None]
  - CHOLELITHIASIS [None]
  - JAUNDICE [None]
  - LIVER DISORDER [None]
  - PLATELET COUNT DECREASED [None]
